FAERS Safety Report 10382030 (Version 3)
Quarter: 2015Q2

REPORT INFORMATION
  Report Type: Spontaneous
  Country: ZA (occurrence: ZA)
  Receive Date: 20140813
  Receipt Date: 20150421
  Transmission Date: 20150821
  Serious: Yes (Other)
  Sender: FDA-Public Use
  Company Number: ZA-RB PHARMACEUTICALS LIMITED-RB-70472-2014

PATIENT
  Age: 9 Year
  Sex: Male

DRUGS (1)
  1. SUBOXONE [Suspect]
     Active Substance: BUPRENORPHINE HYDROCHLORIDE\NALOXONE HYDROCHLORIDE
     Dosage: 2 MG UNK
     Route: 048
     Dates: start: 20140724, end: 201407

REACTIONS (3)
  - Accidental exposure to product by child [Recovered/Resolved]
  - Syncope [Recovered/Resolved]
  - Drug dispensing error [Recovered/Resolved]

NARRATIVE: CASE EVENT DATE: 20140724
